FAERS Safety Report 5479515-3 (Version None)
Quarter: 2007Q4

REPORT INFORMATION
  Report Type: 
  Country: None (occurrence: None)
  Receive Date: 20071008
  Receipt Date: 20070926
  Transmission Date: 20080405
  Serious: Yes (Life-Threatening, Hospitalization, Disabling)
  Sender: FDA-Public Use
  Company Number: DE-ROCHE-507404

PATIENT
  Age: 50 Year
  Sex: Male
  Weight: 56 kg

DRUGS (2)
  1. PEG-INTERFERON A-2A (RO 25-8310) [Suspect]
     Route: 058
     Dates: start: 20060521, end: 20070323
  2. RIBAVIRIN [Suspect]
     Route: 048
     Dates: start: 20060521, end: 20070323

REACTIONS (1)
  - RENAL FAILURE ACUTE [None]
